FAERS Safety Report 10553863 (Version 1)
Quarter: 2014Q4

REPORT INFORMATION
  Report Type: Spontaneous
  Country: FI (occurrence: FI)
  Receive Date: 20141030
  Receipt Date: 20141030
  Transmission Date: 20150529
  Serious: Yes (Death, Hospitalization, Disabling)
  Sender: FDA-Public Use
  Company Number: PHHY2014FI136350

PATIENT
  Age: 57 Year
  Sex: Female

DRUGS (9)
  1. FEMAR [Concomitant]
     Active Substance: LETROZOLE
     Indication: BREAST CANCER
     Dosage: 2.5 MG, UNK
     Route: 048
     Dates: start: 2001, end: 2006
  2. DECA-DURABOLIN [Concomitant]
     Active Substance: NANDROLONE DECANOATE
     Indication: BREAST CANCER
     Dosage: UNK
     Route: 065
     Dates: start: 200812, end: 200903
  3. TAXOTERE [Concomitant]
     Active Substance: DOCETAXEL
     Indication: BREAST CANCER
     Dosage: 20 MG/ML, UNK
     Route: 042
     Dates: start: 200610, end: 200703
  4. ZOMETA [Suspect]
     Active Substance: ZOLEDRONIC ACID
     Indication: METASTASES TO BONE
     Dosage: 4 MG/ 100 ML
     Route: 042
     Dates: start: 2006
  5. BONEFOS [Suspect]
     Active Substance: CLODRONATE DISODIUM
     Indication: METASTASES TO BONE
     Dosage: 400 MG, UNK
     Route: 048
     Dates: start: 2002, end: 200506
  6. MEGACE [Concomitant]
     Active Substance: MEGESTROL ACETATE
     Indication: BREAST CANCER
     Dosage: 160 MG, UNK
     Route: 048
     Dates: start: 2007
  7. IBANDRONATE [Suspect]
     Active Substance: IBANDRONATE SODIUM
     Indication: METASTASES TO BONE
     Dosage: 50 MG, UNK
     Route: 048
     Dates: start: 2009
  8. AROMASIN [Concomitant]
     Active Substance: EXEMESTANE
     Indication: PRODUCT USED FOR UNKNOWN INDICATION
     Dosage: UNK
     Route: 065
     Dates: start: 200506
  9. CAELYX [Concomitant]
     Active Substance: DOXORUBICIN HYDROCHLORIDE
     Indication: BREAST CANCER
     Dosage: 2 MG/ML, UNK
     Route: 042
     Dates: start: 200908, end: 201103

REACTIONS (6)
  - Tooth extraction [Unknown]
  - Mucous membrane disorder [Not Recovered/Not Resolved]
  - Jaw disorder [Recovered/Resolved]
  - Breast cancer [Fatal]
  - Bone disorder [Recovered/Resolved]
  - Osteonecrosis of jaw [Recovered/Resolved]

NARRATIVE: CASE EVENT DATE: 200610
